FAERS Safety Report 24667593 (Version 2)
Quarter: 2024Q4

REPORT INFORMATION
  Report Type: Spontaneous
  Country: JP (occurrence: JP)
  Receive Date: 20241126
  Receipt Date: 20241216
  Transmission Date: 20250114
  Serious: Yes (Hospitalization, Other)
  Sender: GLAXOSMITHKLINE
  Company Number: JP-GLAXOSMITHKLINE INC-JP2024145464

PATIENT

DRUGS (2)
  1. NUCALA [Suspect]
     Active Substance: MEPOLIZUMAB
     Indication: Chronic rhinosinusitis with nasal polyps
     Dosage: 200 MG
     Route: 058
     Dates: start: 20241111
  2. NUCALA [Suspect]
     Active Substance: MEPOLIZUMAB
     Indication: Chronic eosinophilic rhinosinusitis

REACTIONS (5)
  - Asthma [Unknown]
  - Renal impairment [Recovering/Resolving]
  - Renal disorder [Unknown]
  - Dehydration [Unknown]
  - Overdose [Unknown]

NARRATIVE: CASE EVENT DATE: 20241120
